FAERS Safety Report 7927019-8 (Version None)
Quarter: 2011Q4

REPORT INFORMATION
  Report Type: 
  Country: None (occurrence: None)
  Receive Date: 20111118
  Receipt Date: 20111114
  Transmission Date: 20120403
  Serious: Yes (Hospitalization, Other)
  Sender: FDA-Public Use
  Company Number: US-JNJFOC-20061100874

PATIENT
  Sex: Male

DRUGS (2)
  1. RISPERDAL [Suspect]
     Indication: DEPRESSION
     Route: 048
  2. RISPERDAL [Suspect]
     Indication: POST-TRAUMATIC STRESS DISORDER
     Route: 048

REACTIONS (12)
  - PANCREATITIS [None]
  - TYPE 2 DIABETES MELLITUS [None]
  - JAUNDICE CHOLESTATIC [None]
  - SEPSIS [None]
  - HEPATIC STEATOSIS [None]
  - CONVULSION [None]
  - CHOLELITHIASIS [None]
  - CHOLANGITIS [None]
  - GASTRITIS [None]
  - HALLUCINATION [None]
  - SLEEP DISORDER [None]
  - MYOCARDIAL INFARCTION [None]
